FAERS Safety Report 12757547 (Version 2)
Quarter: 2016Q3

REPORT INFORMATION
  Report Type: Spontaneous
  Country: US (occurrence: US)
  Receive Date: 20160919
  Receipt Date: 20160928
  Transmission Date: 20161109
  Serious: No
  Sender: FDA-Public Use
  Company Number: US-BIO PRODUCTS LABORATORY LTD-1057433

PATIENT
  Age: 80 Year
  Sex: Male
  Weight: 69.5 kg

DRUGS (27)
  1. METFORMIN [Concomitant]
     Active Substance: METFORMIN HYDROCHLORIDE
  2. PROAIR HFA [Concomitant]
     Active Substance: ALBUTEROL SULFATE
  3. CLONAZEPAM. [Concomitant]
     Active Substance: CLONAZEPAM
  4. COENZYME Q10 [Concomitant]
     Active Substance: UBIDECARENONE
  5. TRAMADOL. [Concomitant]
     Active Substance: TRAMADOL
  6. TRAZODONE [Concomitant]
     Active Substance: TRAZODONE HYDROCHLORIDE
  7. ASPIRIN. [Concomitant]
     Active Substance: ASPIRIN
  8. DIVALPROEX SODIUM. [Concomitant]
     Active Substance: DIVALPROEX SODIUM
  9. MAGNESIUM [Concomitant]
     Active Substance: MAGNESIUM
  10. NITROSTAT [Concomitant]
     Active Substance: NITROGLYCERIN
  11. XARELTO [Concomitant]
     Active Substance: RIVAROXABAN
  12. GLIMIPIRIDE [Concomitant]
     Active Substance: GLIMEPIRIDE
  13. LEVOCETIRIZINE [Concomitant]
     Active Substance: LEVOCETIRIZINE
  14. VITAMIN D3DIETARY SUPPLEMEN DIETARY SUPPLEMENT [Concomitant]
     Active Substance: ALPHA-TOCOPHEROL\CHOLECALCIFEROL
  15. BUPROPION. [Concomitant]
     Active Substance: BUPROPION
  16. CALCIUM [Concomitant]
     Active Substance: CALCIUM
  17. CRESTOR [Concomitant]
     Active Substance: ROSUVASTATIN CALCIUM
  18. PROTONIX [Concomitant]
     Active Substance: PANTOPRAZOLE SODIUM
  19. VITAMIN B12 [Concomitant]
     Active Substance: CYANOCOBALAMIN
  20. ATENOLOL. [Concomitant]
     Active Substance: ATENOLOL
  21. LEVOTHYROXINE. [Concomitant]
     Active Substance: LEVOTHYROXINE
  22. GAMMAPLEX [Suspect]
     Active Substance: HUMAN IMMUNOGLOBULIN G
     Indication: GUILLAIN-BARRE SYNDROME
     Route: 042
     Dates: start: 20160401
  23. ALPRAZOLAM. [Concomitant]
     Active Substance: ALPRAZOLAM
  24. AMOXICILLIN. [Concomitant]
     Active Substance: AMOXICILLIN
  25. BENAZEPRIL [Concomitant]
     Active Substance: BENAZEPRIL HYDROCHLORIDE
  26. GABAPENTIN. [Concomitant]
     Active Substance: GABAPENTIN
  27. ZANTAC [Concomitant]
     Active Substance: RANITIDINE HYDROCHLORIDE

REACTIONS (1)
  - Alopecia [Unknown]
